FAERS Safety Report 5190862-5 (Version None)
Quarter: 2006Q4

REPORT INFORMATION
  Report Type: 
  Country: None (occurrence: None)
  Receive Date: 20061222
  Receipt Date: 20061128
  Transmission Date: 20070319
  Serious: Yes (Other)
  Sender: FDA-Public Use
  Company Number: US-SHR-US-2006-036912

PATIENT
  Age: 30 Year
  Sex: Female

DRUGS (5)
  1. BETASERON [Suspect]
     Indication: MULTIPLE SCLEROSIS
     Dosage: UNK, UNK
     Route: 058
     Dates: start: 19970820, end: 20060915
  2. BETASERON [Suspect]
     Dosage: 4 MIU, EVERY 2D
     Route: 058
     Dates: start: 20061121
  3. PLAPEL [Suspect]
     Dates: start: 20060901, end: 20060101
  4. ADDERALL 10 [Concomitant]
  5. ADVIL [Concomitant]

REACTIONS (5)
  - INFLUENZA LIKE ILLNESS [None]
  - INJECTION SITE MASS [None]
  - MIGRAINE [None]
  - NASOPHARYNGITIS [None]
  - PERIPHERAL VASCULAR DISORDER [None]
